FAERS Safety Report 4379973-1 (Version None)
Quarter: 2004Q2

REPORT INFORMATION
  Report Type: 
  Country: None (occurrence: None)
  Receive Date: 20040614
  Receipt Date: 20040602
  Transmission Date: 20050107
  Serious: Yes (Other)
  Sender: FDA-Public Use
  Company Number: M2004-0623

PATIENT
  Age: 37 Year
  Sex: Female
  Weight: 65 kg

DRUGS (1)
  1. PENICILLIN VK [Suspect]
     Indication: PHARYNGITIS STREPTOCOCCAL
     Dosage: 2 QDS, ORAL
     Route: 048
     Dates: start: 20020829, end: 20020906

REACTIONS (1)
  - CONVULSION [None]
